FAERS Safety Report 7739460-7 (Version None)
Quarter: 2011Q3

REPORT INFORMATION
  Report Type: 
  Country: None (occurrence: None)
  Receive Date: 20110909
  Receipt Date: 20110901
  Transmission Date: 20111222
  Serious: Yes (Death, Other)
  Sender: FDA-Public Use
  Company Number: FR-BAYER-2011-082561

PATIENT
  Age: 48 Year
  Sex: Female

DRUGS (2)
  1. SUTENT [Suspect]
  2. NEXAVAR [Suspect]
     Indication: HEPATIC NEOPLASM MALIGNANT RECURRENT
     Dosage: 400 MG BID

REACTIONS (6)
  - DISEASE PROGRESSION [None]
  - ABDOMINAL PAIN [None]
  - PNEUMATOSIS INTESTINALIS [None]
  - GENERAL PHYSICAL HEALTH DETERIORATION [None]
  - DIARRHOEA [None]
  - PALMAR-PLANTAR ERYTHRODYSAESTHESIA SYNDROME [None]
